FAERS Safety Report 11567182 (Version 1)
Quarter: 2015Q3

REPORT INFORMATION
  Report Type: Spontaneous
  Country: US (occurrence: US)
  Receive Date: 20150916
  Receipt Date: 20150916
  Transmission Date: 20151125
  Serious: No
  Sender: FDA-Public Use
  Company Number: US-ELI_LILLY_AND_COMPANY-US200907002483

PATIENT
  Age: 76 Year
  Sex: Female

DRUGS (6)
  1. LEVOTHYROXINE. [Concomitant]
     Active Substance: LEVOTHYROXINE
  2. LOVASTATIN. [Concomitant]
     Active Substance: LOVASTATIN
  3. DIOVAN [Concomitant]
     Active Substance: VALSARTAN
  4. TRICOR                             /00499301/ [Concomitant]
  5. FORTEO [Suspect]
     Active Substance: TERIPARATIDE
  6. BISOPROLOL [Concomitant]
     Active Substance: BISOPROLOL

REACTIONS (2)
  - Chest pain [Recovered/Resolved]
  - Incorrect dose administered [Unknown]

NARRATIVE: CASE EVENT DATE: 20090712
